FAERS Safety Report 21144699 (Version 1)
Quarter: 2022Q3

REPORT INFORMATION
  Report Type: Spontaneous
  Country: US (occurrence: US)
  Receive Date: 20220728
  Receipt Date: 20220728
  Transmission Date: 20221027
  Serious: No
  Sender: FDA-Public Use
  Company Number: US-Teikoku Pharma USA-TPU2022-00625

PATIENT
  Sex: Female
  Weight: 64.014 kg

DRUGS (1)
  1. LIDOCAINE PATCH [Suspect]
     Active Substance: LIDOCAINE
     Indication: Back pain
     Route: 061

REACTIONS (3)
  - Product availability issue [Not Recovered/Not Resolved]
  - Hypersensitivity [Unknown]
  - Product dose omission issue [Unknown]
